FAERS Safety Report 8161645-9 (Version None)
Quarter: 2012Q2

REPORT INFORMATION
  Report Type: 
  Country: None (occurrence: None)
  Receive Date: 20120224
  Receipt Date: 20120216
  Transmission Date: 20120825
  Serious: Yes (Death, Life-Threatening, Hospitalization)
  Sender: FDA-Public Use
  Company Number: JP-PFIZER INC-2012046210

PATIENT
  Age: 71 Year
  Sex: Male

DRUGS (10)
  1. PLAVIX [Suspect]
     Dosage: UNK
     Dates: start: 20111214, end: 20120118
  2. PROMAC /JPN/ [Suspect]
     Dosage: UNK
     Dates: start: 20120118, end: 20120121
  3. VALPROATE SODIUM [Suspect]
     Indication: CONVULSION
     Dosage: 8 ML, 2X/DAY
     Route: 048
     Dates: start: 20111214, end: 20120121
  4. LIPITOR [Suspect]
     Indication: LOW DENSITY LIPOPROTEIN INCREASED
     Dosage: 10 MG, 1X/DAY
     Route: 048
     Dates: start: 20120113, end: 20120121
  5. CEFAZOLIN [Suspect]
     Indication: PYREXIA
     Dosage: 1 G, 2X/DAY
     Route: 041
     Dates: start: 20111224, end: 20111229
  6. DORIPENEM MONOHYDRATE [Concomitant]
     Dosage: UNK
     Dates: start: 20120103, end: 20120116
  7. CITICOLINE [Concomitant]
     Dosage: UNK
     Dates: start: 20111215, end: 20111228
  8. RADICUT [Concomitant]
     Dosage: UNK
     Dates: start: 20111214, end: 20111226
  9. OZAGREL SODIUM [Concomitant]
     Dosage: UNK
     Dates: start: 20111215, end: 20111227
  10. METHYLPREDNISOLONE SODIUM SUCCINATE [Concomitant]
     Dosage: UNK
     Dates: start: 20120122, end: 20120127

REACTIONS (3)
  - ALANINE AMINOTRANSFERASE INCREASED [None]
  - ASPARTATE AMINOTRANSFERASE INCREASED [None]
  - STEVENS-JOHNSON SYNDROME [None]
